FAERS Safety Report 9254033 (Version 1)
Quarter: 2013Q2

REPORT INFORMATION
  Report Type: Spontaneous
  Country: HR (occurrence: HR)
  Receive Date: 20130425
  Receipt Date: 20130425
  Transmission Date: 20140414
  Serious: Yes (Life-Threatening, Other)
  Sender: FDA-Public Use
  Company Number: HR-UCBSA-084169

PATIENT
  Age: 73 Year
  Sex: Male
  Weight: 85 kg

DRUGS (6)
  1. XYZAL [Suspect]
     Indication: HYPERSENSITIVITY
     Route: 048
     Dates: start: 201211, end: 201211
  2. NEBILET [Concomitant]
     Indication: TACHYCARDIA
     Dosage: STRENGTH: 5MG, 1/2 TABLET PER DAY
     Route: 048
  3. ZYLIT [Concomitant]
     Indication: MYOCARDIAL INFARCTION
     Dosage: STRENGTH: 75MG
     Route: 048
  4. SERETIDE [Concomitant]
     Indication: ASTHMA
     Dosage: 1DF=50MCG OF SALMETEROL IN A FORM OF SALMETEROL XINAFOATE AND 500MCG OF FLUTICASONE PROPIONATE
     Route: 055
  5. CORDARONE [Concomitant]
     Dosage: STRENGTH: 200MG
     Route: 048
  6. FRUSEMIDE [Concomitant]
     Dosage: STRENGTH: 40MG, DOSING: 1/2 TABLET EVERY OTHER DAY
     Route: 048

REACTIONS (1)
  - Angioedema [Recovered/Resolved]
